FAERS Safety Report 6274495-5 (Version None)
Quarter: 2009Q3

REPORT INFORMATION
  Report Type: 
  Country: None (occurrence: None)
  Receive Date: 20090716
  Receipt Date: 20090708
  Transmission Date: 20100115
  Serious: No
  Sender: FDA-Public Use
  Company Number: 2009008013

PATIENT

DRUGS (3)
  1. FENTORA [Suspect]
     Indication: ARTHRALGIA
     Dosage: BU
     Route: 002
  2. FENTORA [Suspect]
     Indication: ENDOMETRIOSIS
     Dosage: BU
     Route: 002
  3. MORPHINE [Concomitant]

REACTIONS (1)
  - DRUG PRESCRIBING ERROR [None]
